FAERS Safety Report 8827446 (Version 1)
Quarter: 2012Q4

REPORT INFORMATION
  Report Type: Report from Study
  Country: CA (occurrence: CA)
  Receive Date: 20121008
  Receipt Date: 20121008
  Transmission Date: 20130627
  Serious: Yes (Other)
  Sender: FDA-Public Use
  Company Number: CA-JNJFOC-20121001323

PATIENT
  Sex: Male
  Weight: 82 kg

DRUGS (14)
  1. SIMPONI [Suspect]
     Indication: RHEUMATOID ARTHRITIS
     Route: 058
     Dates: start: 20110301
  2. METHOTREXATE [Concomitant]
     Route: 058
  3. FOLIC ACID [Concomitant]
     Route: 048
  4. VITAMIN D [Concomitant]
     Dosage: 1000 IU
     Route: 048
  5. IMOVANE [Concomitant]
     Route: 048
  6. LIPITOR [Concomitant]
     Route: 048
  7. FLOMAX [Concomitant]
     Route: 048
  8. SLOW K [Concomitant]
     Route: 048
  9. NORTRIPTYLINE [Concomitant]
     Route: 048
  10. AVAPRO [Concomitant]
     Route: 048
  11. LASIX [Concomitant]
     Route: 048
  12. LASIX [Concomitant]
     Route: 048
  13. TYLENOL [Concomitant]
     Route: 048
  14. NITROGLYCERIN [Concomitant]

REACTIONS (1)
  - Malignant melanoma [Not Recovered/Not Resolved]
